FAERS Safety Report 20949553 (Version 2)
Quarter: 2022Q2

REPORT INFORMATION
  Report Type: Spontaneous
  Country: US (occurrence: US)
  Receive Date: 20220613
  Receipt Date: 20220615
  Transmission Date: 20220721
  Serious: No
  Sender: FDA-Public Use
  Company Number: US-BAUSCH-BL-2022-014808

PATIENT
  Sex: Male

DRUGS (2)
  1. XIFAXAN [Suspect]
     Active Substance: RIFAXIMIN
     Indication: Irritable bowel syndrome
     Dosage: A WEEK AGO, TWO TIMES A DAY AT FIRST
     Route: 048
     Dates: start: 202206, end: 202206
  2. XIFAXAN [Suspect]
     Active Substance: RIFAXIMIN
     Dosage: THREE TIMES A DAY
     Route: 048
     Dates: start: 202206, end: 20220610

REACTIONS (14)
  - Hypophagia [Unknown]
  - Oral pain [Unknown]
  - Restlessness [Unknown]
  - Disturbance in attention [Unknown]
  - Manic symptom [Unknown]
  - Visual impairment [Unknown]
  - Muscle spasms [Unknown]
  - Ill-defined disorder [Unknown]
  - Poor quality sleep [Unknown]
  - Retching [Unknown]
  - Depression [Unknown]
  - Fatigue [Unknown]
  - Abdominal pain [Unknown]
  - Inappropriate schedule of product administration [Unknown]

NARRATIVE: CASE EVENT DATE: 20220601
